FAERS Safety Report 7563075-7 (Version None)
Quarter: 2011Q2

REPORT INFORMATION
  Report Type: 
  Country: None (occurrence: None)
  Receive Date: 20110525
  Receipt Date: 20110422
  Transmission Date: 20111010
  Serious: No
  Sender: FDA-Public Use
  Company Number: 327094

PATIENT
  Age: 56 Year
  Sex: Female

DRUGS (1)
  1. VICTOZA [Suspect]
     Indication: TYPE 2 DIABETES MELLITUS
     Dosage: 1.8 MG, 1.2 MG, 0.6 MG, QD, SUBCUTANEOUS
     Route: 058

REACTIONS (2)
  - NAUSEA [None]
  - DECREASED APPETITE [None]
